FAERS Safety Report 17858067 (Version 3)
Quarter: 2020Q3

REPORT INFORMATION
  Report Type: Report from Study
  Country: None (occurrence: US)
  Receive Date: 20200604
  Receipt Date: 20200724
  Transmission Date: 20201103
  Serious: No
  Sender: FDA-Public Use
  Company Number: US-BIOVITRUM-2020US2942

PATIENT
  Age: 18 Year
  Sex: Female

DRUGS (9)
  1. KINERET [Suspect]
     Active Substance: ANAKINRA
     Route: 058
     Dates: start: 20200530
  2. AMLODIPINE [Concomitant]
     Active Substance: AMLODIPINE BESYLATE
  3. COLCHICINE. [Concomitant]
     Active Substance: COLCHICINE
  4. PRENATAL VITAMINS [Concomitant]
     Active Substance: VITAMINS
  5. DESCOVY [Concomitant]
     Active Substance: EMTRICITABINE\TENOFOVIR ALAFENAMIDE FUMARATE
  6. DICYCLOMINE [Concomitant]
     Active Substance: DICYCLOMINE HYDROCHLORIDE
  7. MOTEGRITY [Concomitant]
     Active Substance: PRUCALOPRIDE SUCCINATE
  8. KINERET [Suspect]
     Active Substance: ANAKINRA
     Indication: ARTHRALGIA
     Route: 058
     Dates: start: 20200514, end: 20200529
  9. ZOLOFT [Concomitant]
     Active Substance: SERTRALINE HYDROCHLORIDE

REACTIONS (13)
  - Burning sensation [Unknown]
  - Urinary tract infection [Unknown]
  - Injection site inflammation [Unknown]
  - Injection site warmth [Unknown]
  - Injection site erythema [Unknown]
  - Pyrexia [Unknown]
  - Urethritis [Unknown]
  - Inflammation [Unknown]
  - Off label use [Not Recovered/Not Resolved]
  - Injection site pain [Unknown]
  - Injection site pruritus [Unknown]
  - Injection site swelling [Unknown]
  - Rash [Unknown]

NARRATIVE: CASE EVENT DATE: 20200514
